FAERS Safety Report 15193779 (Version 1)
Quarter: 2018Q3

REPORT INFORMATION
  Report Type: Spontaneous
  Country: US (occurrence: US)
  Receive Date: 20180626
  Receipt Date: 20180626
  Transmission Date: 20181010
  Serious: No
  Sender: FDA-Public Use
  Company Number: None

PATIENT
  Age: 55 Year
  Sex: Male
  Weight: 90.7 kg

DRUGS (2)
  1. TAXOL [Suspect]
     Active Substance: PACLITAXEL
     Dates: end: 20180601
  2. CARBOPLATIN. [Suspect]
     Active Substance: CARBOPLATIN
     Dates: end: 20180601

REACTIONS (1)
  - Blood sodium decreased [None]

NARRATIVE: CASE EVENT DATE: 20180607
